FAERS Safety Report 5850707-4 (Version None)
Quarter: 2008Q3

REPORT INFORMATION
  Report Type: 
  Country: None (occurrence: None)
  Receive Date: 20080818
  Receipt Date: 20080806
  Transmission Date: 20090109
  Serious: Yes (Life-Threatening, Other)
  Sender: FDA-Public Use
  Company Number: 100#03#2007-04283

PATIENT
  Age: 37 Year
  Sex: Female

DRUGS (8)
  1. SERTRALINE [Suspect]
     Indication: DEPRESSION
     Dosage: 50MG ORAL, 100 MG DAILY ORAL
     Route: 048
     Dates: start: 20061106, end: 20061206
  2. SERTRALINE [Suspect]
     Indication: DEPRESSION
     Dosage: 50MG ORAL, 100 MG DAILY ORAL
     Route: 048
     Dates: start: 20051010
  3. INFLUENZA VIRUS (INFLUENZA VIRUS) [Concomitant]
  4. BECLOMETHASONE DIPROPIONATE [Concomitant]
  5. SALBUTAMOL (SALBUTAMOL) [Concomitant]
  6. LACTULOSE [Concomitant]
  7. KETOVITE (VITAMINS NOS) [Concomitant]
  8. CERAZETTE (DESOGESTREL) [Concomitant]

REACTIONS (5)
  - ALCOHOL USE [None]
  - ANTIPHOSPHOLIPID SYNDROME [None]
  - DRUG EXPOSURE DURING PREGNANCY [None]
  - STILLBIRTH [None]
  - VAGINAL HAEMORRHAGE [None]
